FAERS Safety Report 4325226-7 (Version None)
Quarter: 2004Q1

REPORT INFORMATION
  Report Type: 
  Country: None (occurrence: None)
  Receive Date: 20040323
  Receipt Date: 20040224
  Transmission Date: 20041129
  Serious: No
  Sender: FDA-Public Use
  Company Number: USA040258705

PATIENT
  Age: 71 Year
  Sex: Male

DRUGS (6)
  1. CIALIS [Suspect]
     Dosage: 20 MG
  2. EASPRIN (ACETYLSALICYCLIC ACID) [Concomitant]
  3. MOTRIN [Concomitant]
  4. PRILOSEC [Concomitant]
  5. MULTI-VITAMIN [Concomitant]
  6. THYROID TAB [Concomitant]

REACTIONS (2)
  - EXTRASYSTOLES [None]
  - HEART RATE INCREASED [None]
